FAERS Safety Report 4825271-9 (Version None)
Quarter: 2005Q4

REPORT INFORMATION
  Report Type: 
  Country: None (occurrence: None)
  Receive Date: 20051109
  Receipt Date: 20051031
  Transmission Date: 20060501
  Serious: Yes (Other)
  Sender: FDA-Public Use
  Company Number: BR-2005-023256

PATIENT
  Age: 25 Year
  Sex: Female

DRUGS (1)
  1. YASMIN [Suspect]
     Indication: ORAL CONTRACEPTION
     Dosage: 1 TAB (S), ORAL
     Route: 048
     Dates: start: 20050401

REACTIONS (3)
  - ABDOMINAL PAIN [None]
  - NAUSEA [None]
  - SYNCOPE [None]
